FAERS Safety Report 18932904 (Version 2)
Quarter: 2021Q3

REPORT INFORMATION
  Report Type: Spontaneous
  Country: FR (occurrence: FR)
  Receive Date: 20210224
  Receipt Date: 20210716
  Transmission Date: 20211014
  Serious: Yes (Hospitalization)
  Sender: FDA-Public Use
  Company Number: FR-TEVA-2021-FR-1882334

PATIENT
  Age: 26 Year
  Sex: Female

DRUGS (4)
  1. ESOMEPRAZOLE. [Suspect]
     Active Substance: ESOMEPRAZOLE MAGNESIUM
     Indication: PRODUCT USED FOR UNKNOWN INDICATION
     Dosage: AT THERAPEUTIC AND LIMITED DOSES.
     Route: 065
  2. VERAPAMIL [Suspect]
     Active Substance: VERAPAMIL HYDROCHLORIDE
     Indication: MIGRAINE PROPHYLAXIS
     Dosage: 240 MILLIGRAM DAILY;
     Route: 065
  3. ALMOTRIPTAN. [Suspect]
     Active Substance: ALMOTRIPTAN
     Indication: MIGRAINE WITH AURA
     Dosage: MISUSE BY CONSUMING MORE THAN 2 PILLS/WEEK,SEVERAL DAYS OF DAILY ADMINISTRATIONS DURING EVERY CRISIS
     Route: 048
  4. PARACETAMOL [Suspect]
     Active Substance: ACETAMINOPHEN
     Indication: PRODUCT USED FOR UNKNOWN INDICATION
     Dosage: AT THERAPEUTIC AND LIMITED DOSES.
     Route: 065

REACTIONS (10)
  - Placental disorder [Unknown]
  - Premature delivery [Unknown]
  - Placental calcification [Unknown]
  - Intentional product misuse [Unknown]
  - Oligohydramnios [Unknown]
  - Maternal exposure during pregnancy [Unknown]
  - Drug abuse [Unknown]
  - Overdose [Unknown]
  - Live birth [Unknown]
  - Hypoperfusion [Unknown]
